FAERS Safety Report 11076086 (Version 1)
Quarter: 2015Q2

REPORT INFORMATION
  Report Type: Spontaneous
  Country: GB (occurrence: GB)
  Receive Date: 20150429
  Receipt Date: 20150429
  Transmission Date: 20150821
  Serious: Yes (Disabling, Other)
  Sender: FDA-Public Use
  Company Number: PHHY2015GB047030

PATIENT
  Age: 54 Year
  Sex: Female
  Weight: 54.88 kg

DRUGS (5)
  1. EUMOVATE [Suspect]
     Active Substance: CLOBETASONE BUTYRATE
     Indication: DERMATITIS ATOPIC
     Route: 061
  2. HYDROCORTISONE. [Suspect]
     Active Substance: HYDROCORTISONE
     Indication: DERMATITIS ATOPIC
     Route: 061
  3. MOMETASONE [Suspect]
     Active Substance: MOMETASONE
     Indication: DERMATITIS ATOPIC
     Route: 061
  4. BETNOVATE [Suspect]
     Active Substance: BETAMETHASONE
     Indication: DERMATITIS ATOPIC
     Route: 061
  5. ELOCON [Suspect]
     Active Substance: MOMETASONE FUROATE
     Indication: DERMATITIS ATOPIC
     Route: 061

REACTIONS (15)
  - Chills [Not Recovered/Not Resolved]
  - Tenderness [Not Recovered/Not Resolved]
  - Pruritus [Not Recovered/Not Resolved]
  - Withdrawal syndrome [Not Recovered/Not Resolved]
  - Insomnia [Not Recovered/Not Resolved]
  - Oedema [Not Recovered/Not Resolved]
  - Wound secretion [Not Recovered/Not Resolved]
  - Skin burning sensation [Not Recovered/Not Resolved]
  - Pain [Not Recovered/Not Resolved]
  - Rash generalised [Not Recovered/Not Resolved]
  - Erythema [Not Recovered/Not Resolved]
  - Body temperature fluctuation [Not Recovered/Not Resolved]
  - Peripheral swelling [Not Recovered/Not Resolved]
  - Paraesthesia [Not Recovered/Not Resolved]
  - Hyperaesthesia [Not Recovered/Not Resolved]

NARRATIVE: CASE EVENT DATE: 20150204
